FAERS Safety Report 4918802-1 (Version None)
Quarter: 2006Q1

REPORT INFORMATION
  Report Type: 
  Country: None (occurrence: None)
  Receive Date: 20060222
  Receipt Date: 20060207
  Transmission Date: 20060701
  Serious: Yes (Hospitalization)
  Sender: FDA-Public Use
  Company Number: JP-SOLVAY-00306000462

PATIENT
  Age: 14155 Day
  Sex: Male
  Weight: 57 kg

DRUGS (6)
  1. SOLANAX [Concomitant]
     Indication: ANXIETY
     Dosage: DAILY DOSE: 1.6 MILLIGRAM(S)
     Route: 048
     Dates: start: 20060110, end: 20060128
  2. DEPROMEL 25 [Suspect]
     Indication: DEPRESSION
     Dosage: DAILY DOSE: 50 MILLIGRAM(S)
     Route: 048
     Dates: start: 20060110, end: 20060118
  3. DEPROMEL 25 [Suspect]
     Dosage: DAILY DOSE: 75 MILLIGRAM(S)
     Route: 048
     Dates: start: 20060119, end: 20060128
  4. DESYREL [Concomitant]
     Indication: DEPRESSION
     Dosage: DAILY DOSE: 25 MILLIGRAM(S)
     Route: 048
     Dates: start: 20060110, end: 20060128
  5. SILECE [Concomitant]
     Indication: INSOMNIA
     Dosage: DAILY DOSE: 2 MILLIGRAM(S)
     Route: 048
     Dates: start: 20060110, end: 20060128
  6. HALCION [Concomitant]
     Indication: INSOMNIA
     Dosage: DAILY DOSE: .25 MILLIGRAM(S)
     Route: 048
     Dates: start: 20060110, end: 20060128

REACTIONS (1)
  - BLOOD CREATINE PHOSPHOKINASE INCREASED [None]
